FAERS Safety Report 15489556 (Version 4)
Quarter: 2020Q1

REPORT INFORMATION
  Report Type: Report from Study
  Country: US (occurrence: US)
  Receive Date: 20181011
  Receipt Date: 20200131
  Transmission Date: 20200409
  Serious: No
  Sender: FDA-Public Use
  Company Number: PHEH2018US042046

PATIENT
  Sex: Male

DRUGS (1)
  1. COSENTYX [Suspect]
     Active Substance: SECUKINUMAB
     Indication: PRODUCT USED FOR UNKNOWN INDICATION
     Route: 065

REACTIONS (5)
  - Skin irritation [Unknown]
  - Herpes zoster [Unknown]
  - Macule [Unknown]
  - Psoriasis [Unknown]
  - Drug ineffective [Unknown]
